FAERS Safety Report 10014771 (Version 1)
Quarter: 2014Q1

REPORT INFORMATION
  Report Type: Spontaneous
  Country: DE (occurrence: DE)
  Receive Date: 20140317
  Receipt Date: 20140317
  Transmission Date: 20141002
  Serious: Yes (Other)
  Sender: FDA-Public Use
  Company Number: DE-TEVA-467437GER

PATIENT
  Age: 1 Day
  Sex: Male

DRUGS (2)
  1. LAMOTRIGIN [Suspect]
     Route: 064
  2. FOLSAEURE [Concomitant]
     Route: 064

REACTIONS (2)
  - Neonatal respiratory distress syndrome [Recovered/Resolved]
  - Restlessness [Unknown]
